FAERS Safety Report 25221000 (Version 1)
Quarter: 2025Q2

REPORT INFORMATION
  Report Type: Spontaneous
  Country: US (occurrence: None)
  Receive Date: 20250419
  Receipt Date: 20250419
  Transmission Date: 20250716
  Serious: Yes (Other)
  Sender: FDA-CTU
  Company Number: None

PATIENT
  Age: 16 Year
  Sex: Female
  Weight: 94.5 kg

DRUGS (8)
  1. ETANERCEPT [Suspect]
     Active Substance: ETANERCEPT
     Indication: Juvenile idiopathic arthritis
     Route: 058
     Dates: start: 20250328, end: 20250414
  2. METHOTREXATE [Suspect]
     Active Substance: METHOTREXATE
     Indication: Juvenile idiopathic arthritis
     Route: 048
     Dates: start: 20241028, end: 20250414
  3. ADDERALL [Concomitant]
     Active Substance: AMPHETAMINE ASPARTATE\AMPHETAMINE SULFATE\DEXTROAMPHETAMINE SACCHARATE\DEXTROAMPHETAMINE SULFATE
  4. CLONIDINE [Concomitant]
     Active Substance: CLONIDINE
  5. FOLIC ACID [Concomitant]
     Active Substance: FOLIC ACID
  6. NAPROXEN [Concomitant]
     Active Substance: NAPROXEN
  7. ONDANSETRON [Concomitant]
     Active Substance: ONDANSETRON
  8. OXYCODONE [Concomitant]
     Active Substance: OXYCODONE

REACTIONS (1)
  - Hodgkin^s disease [None]

NARRATIVE: CASE EVENT DATE: 20250416
